FAERS Safety Report 10010538 (Version 1)
Quarter: 2014Q1

REPORT INFORMATION
  Report Type: Spontaneous
  Country: JP (occurrence: JP)
  Receive Date: 20140314
  Receipt Date: 20140314
  Transmission Date: 20141002
  Serious: Yes (Other)
  Sender: FDA-Public Use
  Company Number: JP-BRISTOL-MYERS SQUIBB COMPANY-20475398

PATIENT
  Sex: 0

DRUGS (4)
  1. ERBITUX SOLN FOR INF 5MG/ML [Suspect]
     Indication: COLON CANCER
     Route: 041
     Dates: start: 20131210
  2. IRINOTECAN [Suspect]
     Indication: COLON CANCER
     Route: 041
  3. FLUOROURACIL [Suspect]
     Indication: COLON CANCER
     Route: 041
  4. CALCIUM FOLINATE [Suspect]
     Indication: COLON CANCER
     Route: 041

REACTIONS (1)
  - Meningitis [Recovering/Resolving]
